FAERS Safety Report 24364232 (Version 2)
Quarter: 2024Q4

REPORT INFORMATION
  Report Type: Report from Study
  Country: DE (occurrence: DE)
  Receive Date: 20240925
  Receipt Date: 20241026
  Transmission Date: 20250115
  Serious: Yes (Other)
  Sender: ABBVIE
  Company Number: DE-ABBVIE-5931023

PATIENT
  Age: 75 Year
  Sex: Male
  Weight: 100 kg

DRUGS (17)
  1. CARBIDOPA\LEVODOPA [Suspect]
     Active Substance: CARBIDOPA\LEVODOPA
     Indication: Parkinson^s disease
     Dosage: MD: 2.0ML; CRD: 3.8ML/H; CRN: 3.7ML/H; ED: 1.7ML (DAY) ED: 1.5 ML (NIGHT)
     Route: 050
  2. CARBIDOPA\LEVODOPA [Suspect]
     Active Substance: CARBIDOPA\LEVODOPA
     Dosage: MD: 5.0ML; CRD: 3.8ML/H; CRN: 3.8ML/H; ED: 1.5ML
     Route: 050
     Dates: start: 20201015
  3. CARBIDOPA\LEVODOPA [Suspect]
     Active Substance: CARBIDOPA\LEVODOPA
     Dosage: 1/2 PER DAYS
     Route: 050
  4. MOVICOL [Concomitant]
     Active Substance: POLYETHYLENE GLYCOL 3350\POTASSIUM CHLORIDE\SODIUM BICARBONATE\SODIUM CHLORIDE
     Indication: Product used for unknown indication
  5. VALSARTAN [Concomitant]
     Active Substance: VALSARTAN
     Indication: Product used for unknown indication
  6. POLYETHYLENE GLYCOLS [Concomitant]
     Active Substance: POLYETHYLENE GLYCOLS
     Indication: Product used for unknown indication
  7. HYDROMORPHONE [Concomitant]
     Active Substance: HYDROMORPHONE
     Indication: Product used for unknown indication
  8. RIVASTIGMINE [Concomitant]
     Active Substance: RIVASTIGMINE
     Indication: Product used for unknown indication
  9. XADAGO [Concomitant]
     Active Substance: SAFINAMIDE MESYLATE
     Indication: Product used for unknown indication
  10. AMLODIPINE [Concomitant]
     Active Substance: AMLODIPINE BESYLATE
     Indication: Product used for unknown indication
  11. MIRABEGRON [Concomitant]
     Active Substance: MIRABEGRON
     Indication: Product used for unknown indication
  12. Dulcolax [Concomitant]
     Indication: Product used for unknown indication
     Dosage: TIME INTERVAL: 0.33333333 WEEKS
  13. PANTOPRAZOLE [Concomitant]
     Active Substance: PANTOPRAZOLE
     Indication: Product used for unknown indication
  14. OPICAPONE [Suspect]
     Active Substance: OPICAPONE
     Indication: Product used for unknown indication
     Route: 048
  15. CLONAZEPAM [Concomitant]
     Active Substance: CLONAZEPAM
     Indication: Product used for unknown indication
  16. FUSICUTAN PLUS BETAMETHASON [Concomitant]
     Indication: Product used for unknown indication
  17. RIVOTRIL [Concomitant]
     Active Substance: CLONAZEPAM
     Indication: Product used for unknown indication

REACTIONS (35)
  - Upper gastrointestinal haemorrhage [Not Recovered/Not Resolved]
  - Obstructive sleep apnoea syndrome [Unknown]
  - Scoliosis [Unknown]
  - Parkinsonism [Unknown]
  - Parkinsonian gait [Unknown]
  - Gastric perforation [Recovered/Resolved]
  - Hallucination [Unknown]
  - Chronic kidney disease [Unknown]
  - Hypertension [Unknown]
  - Dysarthria [Unknown]
  - Diarrhoea [Unknown]
  - Hyperlipidaemia [Unknown]
  - Fall [Unknown]
  - Drug intolerance [Unknown]
  - Faecaloma [Unknown]
  - Gastrointestinal ulcer [Unknown]
  - Stoma site hypergranulation [Unknown]
  - Stoma site erythema [Unknown]
  - Cognitive disorder [Unknown]
  - Cervical vertebral fracture [Unknown]
  - Malignant melanoma [Unknown]
  - Mobility decreased [Unknown]
  - Urinary incontinence [Unknown]
  - Rotator cuff syndrome [Unknown]
  - Stoma site discharge [Unknown]
  - Constipation [Unknown]
  - Flatulence [Unknown]
  - Balance disorder [Unknown]
  - Headache [Unknown]
  - Confusional state [Unknown]
  - Basal cell carcinoma [Unknown]
  - Dyspepsia [Unknown]
  - Restlessness [Unknown]
  - Dysphagia [Unknown]
  - Sensitivity to weather change [Unknown]

NARRATIVE: CASE EVENT DATE: 20201101
